FAERS Safety Report 15810462 (Version 2)
Quarter: 2019Q1

REPORT INFORMATION
  Report Type: Spontaneous
  Country: PT (occurrence: PT)
  Receive Date: 20190111
  Receipt Date: 20190326
  Transmission Date: 20190417
  Serious: Yes (Life-Threatening)
  Sender: FDA-Public Use
  Company Number: PT-ABBVIE-19K-130-2620918-00

PATIENT
  Age: 65 Year
  Sex: Female

DRUGS (7)
  1. DUSPATAL [Concomitant]
     Active Substance: MEBEVERINE
     Indication: CROHN^S DISEASE
  2. HUMIRA [Suspect]
     Active Substance: ADALIMUMAB
     Indication: CROHN^S DISEASE
     Route: 058
     Dates: start: 2016, end: 201811
  3. LEPICORTINOLO [Concomitant]
     Active Substance: PREDNISOLONE
     Indication: METASTASES TO ABDOMINAL WALL
     Dates: end: 2014
  4. IRON [Concomitant]
     Active Substance: IRON
     Indication: PRODUCT USED FOR UNKNOWN INDICATION
  5. MESALAZINE [Concomitant]
     Active Substance: MESALAMINE
     Indication: CROHN^S DISEASE
  6. IMURAN [Suspect]
     Active Substance: AZATHIOPRINE
     Indication: CROHN^S DISEASE
     Route: 065
     Dates: end: 201811
  7. LEPICORTINOLO [Concomitant]
     Active Substance: PREDNISOLONE
     Indication: CROHN^S DISEASE
     Dates: start: 2018

REACTIONS (2)
  - Metastases to abdominal wall [Not Recovered/Not Resolved]
  - Renal neoplasm [Recovered/Resolved]

NARRATIVE: CASE EVENT DATE: 201805
